FAERS Safety Report 5314192-3 (Version None)
Quarter: 2007Q2

REPORT INFORMATION
  Report Type: 
  Country: None (occurrence: None)
  Receive Date: 20070501
  Receipt Date: 20070424
  Transmission Date: 20071010
  Serious: Yes (Hospitalization)
  Sender: FDA-Public Use
  Company Number: MX-MERCK-0704MEX00016

PATIENT
  Age: 53 Year
  Sex: Male
  Weight: 79 kg

DRUGS (2)
  1. COZAAR [Suspect]
     Indication: HYPERTENSION
     Route: 048
     Dates: start: 20070417, end: 20070420
  2. VASERETIC [Concomitant]
     Indication: HYPERTENSION
     Route: 048
     Dates: start: 20070401, end: 20070416

REACTIONS (2)
  - DRUG INEFFECTIVE [None]
  - HYPERTENSIVE CRISIS [None]
